FAERS Safety Report 18621272 (Version 1)
Quarter: 2020Q4

REPORT INFORMATION
  Report Type: Spontaneous
  Country: IE (occurrence: IE)
  Receive Date: 20201215
  Receipt Date: 20201215
  Transmission Date: 20210114
  Serious: Yes (Other)
  Sender: FDA-Public Use
  Company Number: IE-VERTEX PHARMACEUTICALS-2020-022403

PATIENT
  Age: 17 Year
  Sex: Male

DRUGS (19)
  1. LEVEMIR [Concomitant]
     Active Substance: INSULIN DETEMIR
     Dosage: FLEXPEN SC
  2. SEPTRIN [Concomitant]
     Active Substance: SULFAMETHOXAZOLE\TRIMETHOPRIM
     Dosage: 960 MG, BID X 2 WEEKS
     Route: 048
  3. CHOLECALCIFEROL [Concomitant]
     Active Substance: CHOLECALCIFEROL
     Dosage: 800 INTERNATIONAL UNIT, QD
  4. PARAVIT [Concomitant]
     Active Substance: ACETAMINOPHEN\ASCORBIC ACID
     Dosage: BD
     Route: 048
  5. CIPROFLOXACIN. [Concomitant]
     Active Substance: CIPROFLOXACIN
     Dosage: 750 MG, BID
     Route: 048
  6. KALYDECO [Suspect]
     Active Substance: IVACAFTOR
     Indication: CYSTIC FIBROSIS
     Dosage: 15 MG, QD
     Route: 048
     Dates: start: 20201105, end: 20201120
  7. HYPERTONIC SALINE SOLUTION [Concomitant]
     Active Substance: SODIUM CHLORIDE
     Dosage: UNK, BID
  8. URSOFALK [Concomitant]
     Active Substance: URSODIOL
     Dosage: 250 MG, OD
     Route: 048
  9. AZITHROMYCIN ANHYDROUS. [Concomitant]
     Active Substance: AZITHROMYCIN ANHYDROUS
     Dosage: 500 MG ( MON/ WED/ FRI) ROTATES MONTHLY
     Route: 048
  10. COLOBREATHE [Concomitant]
     Active Substance: COLISTIMETHATE SODIUM
     Dosage: 125 MG, BID (ROTATES MONTHLY WITH TOBI PODHALER)
  11. PULMOZYME [Concomitant]
     Active Substance: DORNASE ALFA
     Dosage: 2.5 MG, ONCE DAILY
  12. ALFLOREX [Concomitant]
     Dosage: UNK, QD
     Route: 048
  13. FIASP [Concomitant]
     Active Substance: INSULIN ASPART
     Dosage: FLEXPEN SC
     Route: 058
  14. CREON [Concomitant]
     Active Substance: PANCRELIPASE AMYLASE\PANCRELIPASE LIPASE\PANCRELIPASE PROTEASE
     Dosage: 300 MILLIGRAM, WITH MEALS
  15. MOVICOL PLAIN [Concomitant]
     Active Substance: POLYETHYLENE GLYCOL 3350\POTASSIUM CHLORIDE\SODIUM BICARBONATE\SODIUM CHLORIDE
     Dosage: 13.8 GRAM, SACHET
     Route: 048
  16. KAFTRIO [Suspect]
     Active Substance: ELEXACAFTOR\IVACAFTOR\TEZACAFTOR
     Indication: CYSTIC FIBROSIS
     Dosage: 2 TABLETS IN THE MORNING
     Route: 048
     Dates: start: 20201105, end: 20201120
  17. TOBI PODHALER [Concomitant]
     Active Substance: TOBRAMYCIN
     Dosage: 112 MG, BID (ROTATES MONTHLY WITH COLOBREATHE INHALER )
  18. SALBUTAMOL [Concomitant]
     Active Substance: ALBUTEROL
     Dosage: 200 MICROGRAM, BID, PRN
  19. SALINE [SODIUM CHLORIDE] [Concomitant]
     Active Substance: SODIUM CHLORIDE
     Dosage: UNK, BID

REACTIONS (8)
  - Middle insomnia [Not Recovered/Not Resolved]
  - Diarrhoea [Recovered/Resolved]
  - Dizziness [Recovered/Resolved]
  - Hyperglycaemia [Not Recovered/Not Resolved]
  - Otorrhoea [Not Recovered/Not Resolved]
  - Tinnitus [Recovered/Resolved]
  - Headache [Recovered/Resolved]
  - Nausea [Recovered/Resolved]

NARRATIVE: CASE EVENT DATE: 20201106
